FAERS Safety Report 12717307 (Version 3)
Quarter: 2016Q4

REPORT INFORMATION
  Report Type: Spontaneous
  Country: CN (occurrence: CN)
  Receive Date: 20160906
  Receipt Date: 20161017
  Transmission Date: 20170207
  Serious: Yes (Hospitalization, Other)
  Sender: FDA-Public Use
  Company Number: CN-GLAXOSMITHKLINE-CN2016GSK125817

PATIENT
  Age: 32 Year
  Sex: Female
  Weight: 60 kg

DRUGS (9)
  1. VALPROATE MAGNESIUM [Suspect]
     Active Substance: VALPROATE MAGNESIUM
     Indication: PRODUCT USED FOR UNKNOWN INDICATION
     Route: 048
  2. CLONAZEPAM. [Suspect]
     Active Substance: CLONAZEPAM
     Indication: PRODUCT USED FOR UNKNOWN INDICATION
     Dosage: 1 DF, QD
     Route: 048
  3. VITAMIN C [Suspect]
     Active Substance: ASCORBIC ACID
     Indication: RASH
     Dosage: UNK
     Route: 041
     Dates: start: 20160831, end: 20160905
  4. LORATADINE TABLETS [Suspect]
     Active Substance: LORATADINE
     Indication: RASH
     Dosage: UNK
     Route: 048
     Dates: start: 20160831
  5. DEXAMETHASONE. [Suspect]
     Active Substance: DEXAMETHASONE
     Indication: RASH
     Dosage: UNK
     Route: 041
     Dates: start: 20160831, end: 20160905
  6. OLANZAPINE. [Suspect]
     Active Substance: OLANZAPINE
     Indication: PRODUCT USED FOR UNKNOWN INDICATION
     Dosage: 3 DF, QD
     Route: 048
  7. LAMICTAL [Suspect]
     Active Substance: LAMOTRIGINE
     Indication: AFFECTIVE DISORDER
     Dosage: 50 MG, QD
     Route: 048
     Dates: start: 201608, end: 20160828
  8. LITHIUM CARBONATE. [Suspect]
     Active Substance: LITHIUM CARBONATE
     Indication: PRODUCT USED FOR UNKNOWN INDICATION
     Dosage: 2 DF, QD (TABLET)
     Route: 048
  9. ARIPIPRAZOLE TABLETS [Suspect]
     Active Substance: ARIPIPRAZOLE
     Indication: PRURITUS
     Route: 048

REACTIONS (15)
  - Mania [Unknown]
  - Eating disorder [Unknown]
  - Erythema [Not Recovered/Not Resolved]
  - Depressed level of consciousness [Unknown]
  - Joint dislocation [Not Recovered/Not Resolved]
  - Rash maculo-papular [Recovered/Resolved]
  - Condition aggravated [Unknown]
  - Rash generalised [Recovered/Resolved]
  - Nausea [Unknown]
  - Vomiting [Unknown]
  - Enuresis [Unknown]
  - Rash erythematous [Recovered/Resolved]
  - Off label use [Unknown]
  - Pruritus [Recovering/Resolving]
  - Disorganised speech [Unknown]

NARRATIVE: CASE EVENT DATE: 20160826
